FAERS Safety Report 6813527-X (Version None)
Quarter: 2010Q3

REPORT INFORMATION
  Report Type: 
  Country: None (occurrence: None)
  Receive Date: 20100701
  Receipt Date: 20100621
  Transmission Date: 20110219
  Serious: Yes (Hospitalization, Other)
  Sender: FDA-Public Use
  Company Number: US-TEVA-234871USA

PATIENT
  Sex: Female

DRUGS (12)
  1. COPAXONE [Suspect]
     Indication: MULTIPLE SCLEROSIS
     Route: 058
  2. RANITIDINE HYDROCHLORIDE [Suspect]
     Route: 048
  3. LEVOTHYROXINE SODIUM [Concomitant]
     Route: 048
  4. BROMOCRIPTINE MESYLATE [Concomitant]
     Dosage: 3 TABLETS TWICE A DAY
     Route: 048
  5. GABAPENTIN [Concomitant]
     Route: 048
  6. ACETYLSALICYLIC ACID [Concomitant]
     Route: 048
  7. FUROSEMIDE [Concomitant]
     Route: 048
  8. VALPROATE SODIUM [Concomitant]
     Route: 048
  9. POTASSIUM CHLORIDE [Concomitant]
     Route: 048
  10. ZOLPIDEM TARTRATE [Concomitant]
     Route: 048
  11. OMEPRAZOLE [Concomitant]
     Route: 048
  12. FERROUS SULFATE [Concomitant]
     Dosage: 324(65) MG
     Route: 048

REACTIONS (4)
  - ANAEMIA [None]
  - DEHYDRATION [None]
  - MALNUTRITION [None]
  - RENAL FAILURE [None]
